FAERS Safety Report 7363523-1 (Version None)
Quarter: 2011Q1

REPORT INFORMATION
  Report Type: 
  Country: None (occurrence: None)
  Receive Date: 20110321
  Receipt Date: 20110311
  Transmission Date: 20110831
  Serious: Yes (Hospitalization, Other)
  Sender: FDA-Public Use
  Company Number: US-JNJFOC-20100500059

PATIENT
  Sex: Female
  Weight: 66.68 kg

DRUGS (3)
  1. LEVAQUIN [Suspect]
     Indication: COLITIS ISCHAEMIC
     Route: 048
  2. LEVAQUIN [Suspect]
     Route: 042
  3. LEVAQUIN [Suspect]
     Indication: CHRONIC OBSTRUCTIVE PULMONARY DISEASE
     Route: 048

REACTIONS (3)
  - TENDON RUPTURE [None]
  - GASTROINTESTINAL HAEMORRHAGE [None]
  - COLITIS ISCHAEMIC [None]
